FAERS Safety Report 6044092-5 (Version None)
Quarter: 2009Q1

REPORT INFORMATION
  Report Type: 
  Country: None (occurrence: None)
  Receive Date: 20090120
  Receipt Date: 20090115
  Transmission Date: 20090719
  Serious: Yes (Death, Life-Threatening)
  Sender: FDA-Public Use
  Company Number: B0551850A

PATIENT
  Age: 84 Year
  Sex: Male

DRUGS (1)
  1. ARIXTRA [Suspect]
     Indication: PULMONARY EMBOLISM
     Dosage: .5ML PER DAY
     Route: 065

REACTIONS (2)
  - HAEMATOMA [None]
  - HAEMORRHAGE [None]
